FAERS Safety Report 9657441 (Version 2)
Quarter: 2013Q4

REPORT INFORMATION
  Report Type: Spontaneous
  Country: US (occurrence: US)
  Receive Date: 20131030
  Receipt Date: 20131030
  Transmission Date: 20140711
  Serious: Yes (Hospitalization, Other)
  Sender: FDA-Public Use
  Company Number: US-NAPPMUNDI-USA-2011-0076404

PATIENT
  Age: 18 Year
  Sex: Female

DRUGS (5)
  1. OXYCONTIN TABLETS [Suspect]
     Indication: DRUG ABUSE
  2. BUPRENORPHINE (SIMILAR TO NDA 21-306) [Suspect]
     Indication: PRODUCT USED FOR UNKNOWN INDICATION
  3. BUPRENORPHINE [Suspect]
     Indication: PRODUCT USED FOR UNKNOWN INDICATION
     Dosage: UNK
     Dates: start: 2010
  4. PERCODAN /00090001/ [Suspect]
     Indication: DRUG ABUSE
  5. SUBOXONE [Suspect]
     Indication: PRODUCT USED FOR UNKNOWN INDICATION

REACTIONS (13)
  - Drug dependence, antepartum [Unknown]
  - Drug dependence [Unknown]
  - Drug abuse [Unknown]
  - Drug withdrawal syndrome [Unknown]
  - Exposure during pregnancy [Unknown]
  - Euphoric mood [Unknown]
  - Vomiting [Unknown]
  - Malaise [Unknown]
  - Pain [Unknown]
  - Hyperhidrosis [Unknown]
  - Chills [Unknown]
  - Vomiting in pregnancy [Unknown]
  - Decreased appetite [Unknown]
